FAERS Safety Report 14863450 (Version 1)
Quarter: 2018Q2

REPORT INFORMATION
  Report Type: Spontaneous
  Country: CA (occurrence: CA)
  Receive Date: 20180508
  Receipt Date: 20180508
  Transmission Date: 20180711
  Serious: Yes (Hospitalization, Other)
  Sender: FDA-Public Use
  Company Number: CA-TEVA-2018-CA-888547

PATIENT
  Age: 65 Year
  Sex: Male
  Weight: 52 kg

DRUGS (13)
  1. OLANZAPINE. [Concomitant]
     Active Substance: OLANZAPINE
  2. PMS TRAZODONE HCL [Suspect]
     Active Substance: TRAZODONE HYDROCHLORIDE
  3. FOLIC ACID. [Concomitant]
     Active Substance: FOLIC ACID
  4. PANTOPRAZOLE [Concomitant]
     Active Substance: PANTOPRAZOLE
  5. SYNTHROID [Concomitant]
     Active Substance: LEVOTHYROXINE SODIUM
  6. PHENOBARBITAL. [Concomitant]
     Active Substance: PHENOBARBITAL
  7. VITAMIN D [Concomitant]
     Active Substance: CHOLECALCIFEROL
  8. DOCUSATE SODIUM. [Concomitant]
     Active Substance: DOCUSATE SODIUM
  9. FLORINEF ACETATE [Concomitant]
     Active Substance: FLUDROCORTISONE ACETATE
  10. SENNOSIDES. [Concomitant]
     Active Substance: SENNOSIDES
  11. TRAZODONE [Suspect]
     Active Substance: TRAZODONE HYDROCHLORIDE
     Route: 048
  12. CALCIUM [Concomitant]
     Active Substance: CALCIUM
  13. CORTISONE [Concomitant]
     Active Substance: CORTISONE\HYDROCORTISONE

REACTIONS (3)
  - Aspiration [Recovered/Resolved]
  - Priapism [Recovered/Resolved]
  - Penile haematoma [Recovered/Resolved]
